FAERS Safety Report 4367636-8 (Version None)
Quarter: 2004Q2

REPORT INFORMATION
  Report Type: 
  Country: None (occurrence: None)
  Receive Date: 20040601
  Receipt Date: 20040210
  Transmission Date: 20050107
  Serious: Yes (Other)
  Sender: FDA-Public Use
  Company Number: DE-MERCK-0402DEU00075

PATIENT
  Age: 71 Year
  Sex: Male
  Weight: 70 kg

DRUGS (7)
  1. BENZTHIAZIDE AND TRIAMTERENE [Concomitant]
     Route: 065
     Dates: start: 19960101
  2. ISOSORBIDE MONONITRATE [Concomitant]
     Indication: CORONARY ARTERY DISEASE
     Route: 065
     Dates: start: 20010101
  3. PANTOPRAZOLE SODIUM [Concomitant]
     Route: 065
     Dates: start: 20031121, end: 20031124
  4. PHENPROCOUMON [Concomitant]
     Indication: MITRAL VALVE REPLACEMENT
     Route: 065
     Dates: start: 19960101
  5. PRAVASTATIN SODIUM [Suspect]
     Indication: HYPERCHOLESTEROLAEMIA
     Route: 048
     Dates: start: 20020101, end: 20031124
  6. VIOXX [Suspect]
     Indication: PERICARDITIS
     Route: 048
     Dates: start: 20031121, end: 20031124
  7. VIOXX [Suspect]
     Indication: MYOCARDITIS
     Route: 048
     Dates: start: 20031121, end: 20031124

REACTIONS (2)
  - PRESCRIBED OVERDOSE [None]
  - RHABDOMYOLYSIS [None]
